FAERS Safety Report 5427390-5 (Version None)
Quarter: 2007Q3

REPORT INFORMATION
  Report Type: 
  Country: None (occurrence: None)
  Receive Date: 20070828
  Receipt Date: 20070822
  Transmission Date: 20080115
  Serious: Yes (Life-Threatening, Hospitalization, Other)
  Sender: FDA-Public Use
  Company Number: PHBS2007BR14075

PATIENT
  Age: 31 Year
  Sex: Female
  Weight: 105 kg

DRUGS (8)
  1. FORASEQ [Suspect]
     Indication: ASTHMA
     Dosage: 12/400 UG, BID
     Dates: start: 20060901
  2. FORASEQ [Suspect]
     Dosage: 12/400 UG, QID
  3. CLORANA [Concomitant]
     Dosage: 25 MG, QD
  4. PREDNISONE TAB [Suspect]
     Dosage: 20 MG/D
     Route: 048
  5. PREDNISONE TAB [Suspect]
     Dosage: 5 MG/D
     Route: 048
  6. CAPTOPRIL [Concomitant]
     Dosage: 25 MG, QD
     Route: 048
  7. AEROTIDE [Concomitant]
     Route: 065
  8. ANTIASTHMATICS,INHALANTS [Concomitant]
     Dosage: UNK, Q6H

REACTIONS (14)
  - ABDOMINAL PAIN UPPER [None]
  - APHONIA [None]
  - ASTHMA [None]
  - DYSPNOEA [None]
  - FACE OEDEMA [None]
  - FATIGUE [None]
  - FLUID RETENTION [None]
  - HELMINTHIC INFECTION [None]
  - HYPERTENSION [None]
  - OBESITY [None]
  - OEDEMA PERIPHERAL [None]
  - PNEUMONIA [None]
  - RESPIRATORY ARREST [None]
  - WEIGHT INCREASED [None]
